FAERS Safety Report 23244908 (Version 1)
Quarter: 2023Q4

REPORT INFORMATION
  Report Type: Spontaneous
  Country: US (occurrence: US)
  Receive Date: 20231130
  Receipt Date: 20231130
  Transmission Date: 20240110
  Serious: No
  Sender: FDA-Public Use
  Company Number: US-JNJFOC-20231151021

PATIENT
  Age: 62 Year
  Sex: Male
  Weight: 92.8 kg

DRUGS (2)
  1. DARZALEX FASPRO [Suspect]
     Active Substance: DARATUMUMAB\HYALURONIDASE-FIHJ
     Indication: Plasma cell myeloma
     Dosage: 1800MG/15 ML
     Route: 058
     Dates: start: 20221101
  2. DARZALEX FASPRO [Suspect]
     Active Substance: DARATUMUMAB\HYALURONIDASE-FIHJ
     Dosage: 1800MG/15 ML
     Route: 058

REACTIONS (1)
  - Product closure issue [Unknown]

NARRATIVE: CASE EVENT DATE: 20231019
